FAERS Safety Report 8155828-1 (Version None)
Quarter: 2012Q1

REPORT INFORMATION
  Report Type: 
  Country: None (occurrence: None)
  Receive Date: 20120222
  Receipt Date: 20120207
  Transmission Date: 20120608
  Serious: Yes (Hospitalization)
  Sender: FDA-Public Use
  Company Number: BE-RANBAXY-2010US-33246

PATIENT
  Age: 52 Year
  Sex: Male
  Weight: 70 kg

DRUGS (1)
  1. VERAPAMIL [Suspect]
     Indication: HYPERTROPHIC CARDIOMYOPATHY
     Dosage: 120 MG, SINGLE
     Route: 065

REACTIONS (2)
  - CIRCULATORY COLLAPSE [None]
  - OFF LABEL USE [None]
